FAERS Safety Report 7171196-6 (Version None)
Quarter: 2010Q4

REPORT INFORMATION
  Report Type: 
  Country: None (occurrence: None)
  Receive Date: 20101123
  Receipt Date: 20100824
  Transmission Date: 20110411
  Serious: No
  Sender: FDA-Public Use
  Company Number: 017662

PATIENT

DRUGS (1)
  1. CIMZIA [Suspect]
     Dosage: 400 MG 1X/MONTH SUBCUTANEOUS
     Route: 058

REACTIONS (1)
  - NO THERAPEUTIC RESPONSE [None]
